FAERS Safety Report 18999712 (Version 2)
Quarter: 2021Q1

REPORT INFORMATION
  Report Type: Spontaneous
  Country: KR (occurrence: KR)
  Receive Date: 20210311
  Receipt Date: 20210317
  Transmission Date: 20210420
  Serious: Yes (Other)
  Sender: FDA-Public Use
  Company Number: KR-INCYTE CORPORATION-2021IN001979

PATIENT

DRUGS (1)
  1. JAKAVI [Suspect]
     Active Substance: RUXOLITINIB
     Indication: MYELOFIBROSIS
     Dosage: UNK
     Route: 065
     Dates: start: 202008

REACTIONS (5)
  - Leukaemoid reaction [Unknown]
  - Acute kidney injury [Unknown]
  - Cardiac failure [Unknown]
  - Leukocytosis [Unknown]
  - Leukoerythroblastosis [Unknown]

NARRATIVE: CASE EVENT DATE: 20210225
